FAERS Safety Report 11746006 (Version 2)
Quarter: 2015Q4

REPORT INFORMATION
  Report Type: Spontaneous
  Country: US (occurrence: US)
  Receive Date: 20151117
  Receipt Date: 20151120
  Transmission Date: 20160304
  Serious: No
  Sender: FDA-Public Use
  Company Number: US-PFIZER INC-2015388640

PATIENT
  Age: 57 Year
  Sex: Female

DRUGS (2)
  1. CHANTIX [Suspect]
     Active Substance: VARENICLINE TARTRATE
     Dosage: UNK
     Dates: start: 20141222, end: 20141226
  2. CHANTIX [Suspect]
     Active Substance: VARENICLINE TARTRATE
     Indication: SMOKING CESSATION THERAPY
     Dosage: 0.5 AND 1MG, STARTER PACKAGE, AS PRESCRIBED
     Dates: start: 20131106, end: 20131107

REACTIONS (2)
  - Feeling abnormal [Unknown]
  - Decreased interest [Unknown]
